FAERS Safety Report 18561292 (Version 2)
Quarter: 2021Q1

REPORT INFORMATION
  Report Type: Spontaneous
  Country: US (occurrence: US)
  Receive Date: 20201130
  Receipt Date: 20210329
  Transmission Date: 20210419
  Serious: Yes (Other)
  Sender: FDA-Public Use
  Company Number: US-PFIZER INC-2020471025

PATIENT
  Age: 41 Year
  Sex: Female

DRUGS (2)
  1. XELJANZ XR [Suspect]
     Active Substance: TOFACITINIB CITRATE
     Indication: RHEUMATOID ARTHRITIS
     Dosage: 11 MG, DAILY
     Route: 048
     Dates: start: 202005
  2. ALEVE [Concomitant]
     Active Substance: NAPROXEN SODIUM
     Indication: PAIN
     Dosage: UNK

REACTIONS (10)
  - Arthralgia [Unknown]
  - Irritable bowel syndrome [Recovering/Resolving]
  - Product dose omission issue [Unknown]
  - Sensitivity to weather change [Unknown]
  - Ventricular extrasystoles [Recovering/Resolving]
  - Insomnia [Unknown]
  - Palpitations [Recovering/Resolving]
  - Joint range of motion decreased [Unknown]
  - Constipation [Recovering/Resolving]
  - Cystitis haemorrhagic [Unknown]
